FAERS Safety Report 4464957-5 (Version None)
Quarter: 2004Q4

REPORT INFORMATION
  Report Type: 
  Country: None (occurrence: None)
  Receive Date: 20041004
  Receipt Date: 20040413
  Transmission Date: 20050328
  Serious: No
  Sender: FDA-Public Use
  Company Number: 368193

PATIENT
  Age: 44 Year
  Sex: Female

DRUGS (3)
  1. CARVEDILOL [Suspect]
     Indication: HYPERTENSION
     Dosage: 6.25MG TWICE PER DAY
     Route: 048
     Dates: start: 20030801
  2. ZESTRIL [Concomitant]
  3. MAXZIDE [Concomitant]

REACTIONS (1)
  - TINNITUS [None]
